FAERS Safety Report 6294528-X (Version None)
Quarter: 2009Q3

REPORT INFORMATION
  Report Type: 
  Country: None (occurrence: None)
  Receive Date: 20090803
  Receipt Date: 20090724
  Transmission Date: 20100115
  Serious: Yes (Life-Threatening, Other)
  Sender: FDA-Public Use
  Company Number: GB-NOVOPROD-289016

PATIENT
  Sex: Male
  Weight: 79 kg

DRUGS (8)
  1. NOVOMIX 30 [Suspect]
     Indication: TYPE 2 DIABETES MELLITUS
     Dosage: 14 IU, BID
     Route: 058
     Dates: start: 20090520, end: 20090615
  2. ASPIRIN [Concomitant]
     Dates: start: 20040625
  3. AMLODIPINE [Concomitant]
     Dates: start: 20070118
  4. RAMIPRIL [Concomitant]
     Dates: start: 20070711
  5. SILDENAFIL CITRATE [Concomitant]
     Dates: start: 20030101
  6. SIMVASTATIN [Concomitant]
     Dates: start: 20061124
  7. SODIUM CROMOGLICATE [Concomitant]
     Route: 031
     Dates: start: 20081103
  8. METFORMIN [Concomitant]
     Dates: start: 20050905

REACTIONS (4)
  - INJECTION SITE ERYTHEMA [None]
  - INJECTION SITE RASH [None]
  - INJECTION SITE URTICARIA [None]
  - URTICARIA [None]
